FAERS Safety Report 7047213-0 (Version None)
Quarter: 2010Q4

REPORT INFORMATION
  Report Type: 
  Country: None (occurrence: None)
  Receive Date: 20101015
  Receipt Date: 20101006
  Transmission Date: 20110411
  Serious: Yes (Other)
  Sender: FDA-Public Use
  Company Number: GB-NAPPMUNDI-GBR-2010-0007149

PATIENT
  Age: 42 Year
  Sex: Male

DRUGS (8)
  1. MORPHINE SULFATE [Suspect]
     Indication: BACK PAIN
     Dosage: 120 MG, DAILY
  2. TRAMADOL HCL [Concomitant]
     Indication: BACK PAIN
  3. CODEINE PHOSPHATE [Concomitant]
     Indication: BACK PAIN
  4. ASPIRIN [Concomitant]
  5. PROPRANOLOL [Concomitant]
  6. OMEPRAZOLE [Concomitant]
  7. FLUOXETINE [Concomitant]
  8. LOPERAMIDE [Concomitant]

REACTIONS (1)
  - HYPOGONADISM MALE [None]
